FAERS Safety Report 25708296 (Version 1)
Quarter: 2025Q3

REPORT INFORMATION
  Report Type: Spontaneous
  Country: US (occurrence: US)
  Receive Date: 20250821
  Receipt Date: 20250821
  Transmission Date: 20251020
  Serious: Yes (Other)
  Sender: BIOGEN
  Company Number: US-BIOGEN-2025BI01321076

PATIENT
  Sex: Male

DRUGS (1)
  1. SKYCLARYS [Interacting]
     Active Substance: OMAVELOXOLONE
     Indication: Friedreich^s ataxia
     Route: 050

REACTIONS (3)
  - Neoplasm malignant [Unknown]
  - Myocardial necrosis marker increased [Unknown]
  - Drug interaction [Unknown]
